FAERS Safety Report 16374893 (Version 1)
Quarter: 2019Q2

REPORT INFORMATION
  Report Type: Spontaneous
  Country: IT (occurrence: IT)
  Receive Date: 20190531
  Receipt Date: 20190531
  Transmission Date: 20190711
  Serious: Yes (Other)
  Sender: FDA-Public Use
  Company Number: IT-AMGEN-ITASP2019082974

PATIENT
  Age: 70 Year
  Sex: Female
  Weight: 64 kg

DRUGS (11)
  1. XIGDUO XR [Concomitant]
     Active Substance: DAPAGLIFLOZIN PROPANEDIOL\METFORMIN HYDROCHLORIDE
     Dosage: UNK
  2. AMLODIPINE [Concomitant]
     Active Substance: AMLODIPINE BESYLATE
     Dosage: 10 MILLIGRAM
  3. ACETYLSALICYLIC ACID [Concomitant]
     Active Substance: ASPIRIN
     Dosage: 100 MILLIGRAM
  4. HYDROCHLOROTHIAZIDE. [Concomitant]
     Active Substance: HYDROCHLOROTHIAZIDE
     Dosage: 25 MILLIGRAM
  5. METFORMIN [Concomitant]
     Active Substance: METFORMIN HYDROCHLORIDE
     Dosage: 1000 MILLIGRAM
  6. BISOPROLOL FUMARATE. [Concomitant]
     Active Substance: BISOPROLOL FUMARATE
     Dosage: 2.5 MILLIGRAM
  7. LOSARTAN. [Concomitant]
     Active Substance: LOSARTAN
     Dosage: 50 MILLIGRAM
  8. REPATHA [Suspect]
     Active Substance: EVOLOCUMAB
     Indication: HYPERCHOLESTEROLAEMIA
     Dosage: 140 MILLIGRAM, CYCLICAL
     Route: 058
     Dates: start: 20170629
  9. BRILIQUE [Concomitant]
     Active Substance: TICAGRELOR
     Dosage: 180 MILLIGRAM
  10. LEVOTHYROXINE SODIUM. [Concomitant]
     Active Substance: LEVOTHYROXINE SODIUM
     Dosage: 75 MILLIGRAM
  11. PANTOPRAZOLE [Concomitant]
     Active Substance: PANTOPRAZOLE
     Dosage: 20 MILLIGRAM

REACTIONS (1)
  - Renal neoplasm [Unknown]

NARRATIVE: CASE EVENT DATE: 20190227
